FAERS Safety Report 24953660 (Version 3)
Quarter: 2025Q3

REPORT INFORMATION
  Report Type: Report from Study
  Country: CA (occurrence: CA)
  Receive Date: 20250211
  Receipt Date: 20250714
  Transmission Date: 20251020
  Serious: Yes (Hospitalization)
  Sender: JOHNSON AND JOHNSON
  Company Number: CA-JNJFOC-20250144964

PATIENT
  Age: 22 Year
  Sex: Male

DRUGS (3)
  1. REMICADE [Suspect]
     Active Substance: INFLIXIMAB
     Indication: Crohn^s disease
     Dosage: EXPIRY DATE: JUN-2027
     Route: 041
     Dates: start: 20230427
  2. REMICADE [Suspect]
     Active Substance: INFLIXIMAB
     Dosage: UNIT DOSE REPORTED AS 400 (UNITS UNSPECIFIED)
     Route: 041
     Dates: start: 20130214
  3. REMICADE [Suspect]
     Active Substance: INFLIXIMAB
     Route: 041
     Dates: start: 20230427

REACTIONS (5)
  - Pneumonia [Not Recovered/Not Resolved]
  - Vomiting [Unknown]
  - Inappropriate schedule of product administration [Unknown]
  - Influenza [Unknown]
  - Off label use [Unknown]

NARRATIVE: CASE EVENT DATE: 20250109
